FAERS Safety Report 22381319 (Version 2)
Quarter: 2023Q2

REPORT INFORMATION
  Report Type: Spontaneous
  Country: HU (occurrence: HU)
  Receive Date: 20230530
  Receipt Date: 20230627
  Transmission Date: 20230722
  Serious: Yes (Hospitalization)
  Sender: FDA-Public Use
  Company Number: None

PATIENT
  Age: 22 Year
  Sex: Female

DRUGS (15)
  1. LEVETIRACETAM [Suspect]
     Active Substance: LEVETIRACETAM
     Indication: Epilepsy
     Dosage: UNK
  2. URAPIDIL [Suspect]
     Active Substance: URAPIDIL
     Indication: Heart rate increased
     Dosage: 10 MG
     Route: 042
  3. URAPIDIL [Suspect]
     Active Substance: URAPIDIL
     Indication: Hypertension
  4. MANNITOL [Suspect]
     Active Substance: MANNITOL
     Indication: Heart rate increased
     Dosage: 100 MILLILITER
     Route: 041
  5. MANNITOL [Suspect]
     Active Substance: MANNITOL
     Indication: Hypertension
  6. AMLODIPINE [Suspect]
     Active Substance: AMLODIPINE BESYLATE
     Indication: Heart rate increased
     Dosage: 5 MG
     Route: 048
  7. AMLODIPINE [Suspect]
     Active Substance: AMLODIPINE BESYLATE
     Indication: Hypertension
     Dosage: 5 MILLIGRAM, ONCE DAILY (QD), IN THE EVENING
  8. METHYLDOPA [Suspect]
     Active Substance: METHYLDOPA
     Indication: Hypertension
     Dosage: 25 MILLIGRAM, 3X/DAY (TID)
     Route: 048
  9. METHYLDOPA [Suspect]
     Active Substance: METHYLDOPA
     Indication: Heart rate increased
  10. ENOXAPARIN SODIUM [Suspect]
     Active Substance: ENOXAPARIN SODIUM
     Indication: Heart rate increased
     Dosage: 0.6 MILLILITER
     Route: 058
  11. ENOXAPARIN SODIUM [Suspect]
     Active Substance: ENOXAPARIN SODIUM
     Indication: Hypertension
  12. CLONAZEPAM [Suspect]
     Active Substance: CLONAZEPAM
     Indication: Epilepsy
     Route: 041
  13. NITROGLYCERIN [Suspect]
     Active Substance: NITROGLYCERIN
     Indication: Heart rate increased
     Dosage: 5 MG, PER DAY
     Route: 062
  14. NITROGLYCERIN [Suspect]
     Active Substance: NITROGLYCERIN
     Indication: Hypertension
  15. OXYGEN [Concomitant]
     Active Substance: OXYGEN
     Indication: Product used for unknown indication
     Dosage: 7 L/MIN

REACTIONS (5)
  - Hallucination [Recovered/Resolved]
  - Agitation [Recovered/Resolved]
  - Aphasia [Recovered/Resolved]
  - Maternal exposure during pregnancy [Unknown]
  - Drug ineffective [Unknown]
